FAERS Safety Report 5607132-0 (Version None)
Quarter: 2008Q1

REPORT INFORMATION
  Report Type: 
  Country: None (occurrence: None)
  Receive Date: 20080129
  Receipt Date: 20080121
  Transmission Date: 20080703
  Serious: Yes (Other)
  Sender: FDA-Public Use
  Company Number: CA-PFIZER INC-2008006721

PATIENT
  Sex: Male

DRUGS (6)
  1. SUTENT [Suspect]
     Indication: METASTATIC RENAL CELL CARCINOMA
     Route: 048
  2. RANITIDINE [Concomitant]
  3. DEXAMETHASONE TAB [Concomitant]
  4. METOCLOPRAMIDE [Concomitant]
     Indication: NAUSEA
     Dosage: FREQ:WHEN NEEDED
  5. INDOMETHACIN [Concomitant]
  6. POTASSIUM CHLORIDE [Concomitant]

REACTIONS (1)
  - HEPATITIS B [None]
